FAERS Safety Report 25126520 (Version 1)
Quarter: 2025Q1

REPORT INFORMATION
  Report Type: Spontaneous
  Country: CA (occurrence: CA)
  Receive Date: 20250327
  Receipt Date: 20250327
  Transmission Date: 20250408
  Serious: Yes (Hospitalization)
  Sender: TEVA
  Company Number: CA-TEVA-VS-3314794

PATIENT
  Age: 57 Year
  Sex: Male

DRUGS (7)
  1. CITALOPRAM [Suspect]
     Active Substance: CITALOPRAM
     Indication: Antipsychotic therapy
     Route: 065
  2. DULOXETINE [Suspect]
     Active Substance: DULOXETINE
     Indication: Antipsychotic therapy
     Dosage: DOSE FORM: CAPSULE, DELAYED RELEASE
     Route: 048
  3. BUPRENORPHINE\NALOXONE [Suspect]
     Active Substance: BUPRENORPHINE\NALOXONE
     Indication: Back pain
     Route: 065
  4. QUETIAPINE [Suspect]
     Active Substance: QUETIAPINE
     Indication: Antipsychotic therapy
     Route: 065
  5. ZOPICLONE [Suspect]
     Active Substance: ZOPICLONE
     Indication: Antipsychotic therapy
     Route: 065
  6. MIRTAZAPINE [Suspect]
     Active Substance: MIRTAZAPINE
     Indication: Antipsychotic therapy
     Route: 065
  7. ARIPIPRAZOLE [Suspect]
     Active Substance: ARIPIPRAZOLE
     Indication: Antipsychotic therapy
     Dosage: DOSE FORM: NOT SPECIFIED
     Route: 065

REACTIONS (4)
  - Rhabdomyolysis [Unknown]
  - Delirium [Unknown]
  - Acute kidney injury [Unknown]
  - Dementia [Unknown]
